FAERS Safety Report 9919875 (Version 1)
Quarter: 2014Q1

REPORT INFORMATION
  Report Type: Spontaneous
  Country: US (occurrence: US)
  Receive Date: 20140224
  Receipt Date: 20140224
  Transmission Date: 20141002
  Serious: Yes (Other)
  Sender: FDA-Public Use
  Company Number: PHHY2014US019801

PATIENT
  Age: 84 Year
  Sex: Female

DRUGS (3)
  1. ZOLEDRONIC ACID [Suspect]
     Indication: OSTEOPOROSIS
     Route: 041
  2. ACETAMINOPHEN [Concomitant]
  3. DIPHENHYDRAMINE [Concomitant]

REACTIONS (13)
  - Temporal arteritis [Unknown]
  - Pulse abnormal [Unknown]
  - Pyrexia [Unknown]
  - Myalgia [Unknown]
  - Fatigue [Unknown]
  - Influenza like illness [Unknown]
  - Eye pain [Recovering/Resolving]
  - Eye swelling [Recovering/Resolving]
  - Pain in jaw [Unknown]
  - Headache [Unknown]
  - Optic ischaemic neuropathy [Unknown]
  - Blindness [Not Recovered/Not Resolved]
  - Red blood cell sedimentation rate increased [Unknown]
